FAERS Safety Report 9134706 (Version 5)
Quarter: 2013Q4

REPORT INFORMATION
  Report Type: Spontaneous
  Country: US (occurrence: US)
  Receive Date: 20130304
  Receipt Date: 20131226
  Transmission Date: 20140711
  Serious: Yes (Other)
  Sender: FDA-Public Use
  Company Number: US-PFIZER INC-2013071887

PATIENT
  Age: 73 Year
  Sex: Female
  Weight: 53 kg

DRUGS (9)
  1. SUTENT [Suspect]
     Indication: METASTATIC RENAL CELL CARCINOMA
     Dosage: 50 MG, 28 DAYS ON FOLLOWED BY 14 DAYS OFF
  2. SUTENT [Suspect]
     Indication: RENAL CELL CARCINOMA
     Dosage: 40 MG, 1X/DAY
     Route: 048
     Dates: start: 20130120
  3. SUTENT [Suspect]
     Dosage: 50 MG, CYCLIC (DAILY 4 WEEKS ON, 2 WEEKS OFF)
     Dates: start: 20130225
  4. SUTENT [Suspect]
     Dosage: 50 MG, CYCLIC (2WEEKS ON AND 2 WEEKS OFF)
     Dates: start: 20130225
  5. OXYGEN [Concomitant]
     Dosage: UNK
  6. NORVASC [Concomitant]
     Indication: HYPERTENSION
     Dosage: UNK
  7. SIMVASTATIN [Concomitant]
     Indication: BLOOD CHOLESTEROL INCREASED
     Dosage: UNK
  8. PERCOCET [Concomitant]
     Dosage: UNK, PRN
  9. ACETYLSALICYLIC ACID [Concomitant]
     Dosage: 81 MG, UNK

REACTIONS (13)
  - Wound haemorrhage [Unknown]
  - Lung infection [Unknown]
  - Skin disorder [Unknown]
  - Dyspnoea [Unknown]
  - Haemoptysis [Unknown]
  - Epistaxis [Unknown]
  - Sinusitis [Unknown]
  - Nasal ulcer [Unknown]
  - Depression [Unknown]
  - Yellow skin [Unknown]
  - Pallor [Unknown]
  - Malaise [Unknown]
  - Cardiac disorder [Unknown]
